FAERS Safety Report 25210271 (Version 2)
Quarter: 2025Q3

REPORT INFORMATION
  Report Type: Spontaneous
  Country: EU (occurrence: EU)
  Receive Date: 20250417
  Receipt Date: 20250902
  Transmission Date: 20251021
  Serious: Yes (Death, Other)
  Sender: INCYTE
  Company Number: EU-INCYTE CORPORATION-2025IN004046

PATIENT
  Age: 66 Year

DRUGS (13)
  1. TAFASITAMAB [Suspect]
     Active Substance: TAFASITAMAB
     Indication: Diffuse large B-cell lymphoma
  2. TAMIFLU [OSELTAMIVIR] [Concomitant]
     Indication: Product used for unknown indication
     Route: 065
  3. FORTIFI [Concomitant]
     Indication: Product used for unknown indication
     Route: 065
  4. PROSURE [IOPROMIDE] [Concomitant]
     Indication: Product used for unknown indication
     Route: 065
  5. FUROSEMIDE [Concomitant]
     Active Substance: FUROSEMIDE
     Indication: Product used for unknown indication
     Route: 065
  6. CALCIUM CARBONATE [Concomitant]
     Active Substance: CALCIUM CARBONATE
     Indication: Product used for unknown indication
     Route: 065
  7. CREON [Concomitant]
     Active Substance: PANCRELIPASE AMYLASE\PANCRELIPASE LIPASE\PANCRELIPASE PROTEASE
     Indication: Product used for unknown indication
     Route: 065
  8. CODILEK [OXYCODONE HYDROCHLORIDE] [Concomitant]
     Indication: Product used for unknown indication
     Route: 065
  9. NOLPAZA [PANTOPRAZOLE SODIUM] [Concomitant]
     Indication: Product used for unknown indication
     Route: 065
  10. AMLODIPINE\INDAPAMIDE\PERINDOPRIL [Concomitant]
     Active Substance: AMLODIPINE\INDAPAMIDE\PERINDOPRIL
     Indication: Product used for unknown indication
     Route: 065
  11. HALDOL [Concomitant]
     Active Substance: HALOPERIDOL
     Indication: Product used for unknown indication
     Route: 065
  12. MORPHINE [Concomitant]
     Active Substance: MORPHINE
     Indication: Product used for unknown indication
     Route: 065
  13. ANALGIN [LIDOCAINE HYDROCHLORIDE;METAMIZOLE SODIUM] [Concomitant]
     Indication: Product used for unknown indication
     Route: 065

REACTIONS (3)
  - Diffuse large B-cell lymphoma [Fatal]
  - Disease progression [Fatal]
  - Off label use [Unknown]
